FAERS Safety Report 25566075 (Version 1)
Quarter: 2025Q3

REPORT INFORMATION
  Report Type: Report from Study
  Country: EU (occurrence: EU)
  Receive Date: 20250716
  Receipt Date: 20250716
  Transmission Date: 20251020
  Serious: Yes (Hospitalization)
  Sender: ABBVIE
  Company Number: EU-ABBVIE-6371327

PATIENT
  Age: 71 Year
  Sex: Female
  Weight: 87 kg

DRUGS (1)
  1. RINVOQ [Suspect]
     Active Substance: UPADACITINIB
     Indication: Psoriatic arthropathy
     Route: 048
     Dates: start: 20230420, end: 20250704

REACTIONS (1)
  - Embolism [Recovering/Resolving]

NARRATIVE: CASE EVENT DATE: 20250701
